FAERS Safety Report 18341755 (Version 2)
Quarter: 2020Q4

REPORT INFORMATION
  Report Type: Spontaneous
  Country: RU (occurrence: RU)
  Receive Date: 20201005
  Receipt Date: 20201027
  Transmission Date: 20210113
  Serious: Yes (Other)
  Sender: FDA-Public Use
  Company Number: RU-ROCHE-2688177

PATIENT
  Age: 58 Year
  Sex: Female

DRUGS (5)
  1. GAZYVA [Suspect]
     Active Substance: OBINUTUZUMAB
     Dosage: MAINTENANCE DOSE
     Route: 041
     Dates: start: 201804
  2. RITUXIMAB. [Suspect]
     Active Substance: RITUXIMAB
     Indication: B-CELL LYMPHOMA
     Route: 065
  3. GAZYVA [Suspect]
     Active Substance: OBINUTUZUMAB
     Dosage: MAINTENANCE DOSE
     Route: 041
     Dates: start: 201802
  4. BENDAMUSTINE [Suspect]
     Active Substance: BENDAMUSTINE
     Indication: B-CELL LYMPHOMA
     Dosage: 2, 3 DAYS
     Route: 042
  5. GAZYVA [Suspect]
     Active Substance: OBINUTUZUMAB
     Indication: B-CELL LYMPHOMA
     Dosage: 1, 8, 15 DAYS OF THE 1ST CYCLE
     Route: 041
     Dates: start: 20170529, end: 20171115

REACTIONS (7)
  - Oropharyngeal pain [Unknown]
  - Disease recurrence [Recovered/Resolved]
  - Pneumonia [Recovered/Resolved]
  - Secondary immunodeficiency [Unknown]
  - Body temperature increased [Unknown]
  - Cough [Unknown]
  - Asthenia [Unknown]

NARRATIVE: CASE EVENT DATE: 201811
